FAERS Safety Report 9517544 (Version 2)
Quarter: 2013Q3

REPORT INFORMATION
  Report Type: Report from Study
  Country: MX (occurrence: MX)
  Receive Date: 20130911
  Receipt Date: 20130911
  Transmission Date: 20140515
  Serious: Yes (Death)
  Sender: FDA-Public Use
  Company Number: MX-ROCHE-1235856

PATIENT
  Sex: Male
  Weight: 45 kg

DRUGS (2)
  1. XELODA [Suspect]
     Indication: GASTROINTESTINAL CARCINOMA
     Dosage: CYCLICAL
     Route: 048
     Dates: start: 201202, end: 20130514
  2. OXALIPLATIN [Suspect]
     Indication: GASTROINTESTINAL CARCINOMA
     Route: 042

REACTIONS (4)
  - Death [Fatal]
  - Abdominal pain [Not Recovered/Not Resolved]
  - Arthralgia [Unknown]
  - Palmar-plantar erythrodysaesthesia syndrome [Unknown]
